FAERS Safety Report 8568391 (Version 2)
Quarter: 2012Q4

REPORT INFORMATION
  Report Type: 
  Country: DE (occurrence: DE)
  Receive Date: 20120518
  Receipt Date: 20120906
  Transmission Date: 20130627
  Serious: Yes (Hospitalization)
  Sender: FDA-Public Use
  Company Number: DE-PFIZER INC-2012117661

PATIENT
  Age: 46 Year
  Sex: Male

DRUGS (7)
  1. PANTOZOL [Suspect]
     Dosage: 80 mg (4x20mg, once)
     Route: 065
     Dates: start: 20120506, end: 20120506
  2. PANTOZOL [Suspect]
     Dosage: 20 mg, 1x/day
  3. TRIMIPRAMINE [Suspect]
     Dosage: 2 teaspoons, once
     Dates: start: 20120506
  4. CLONAZEPAM [Suspect]
     Dosage: 2.5 mg, Once
     Dates: start: 20120506, end: 20120506
  5. CLONAZEPAM [Suspect]
     Dosage: UNK
  6. VALPROIC ACID [Suspect]
     Dosage: 3.6 g, single
     Dates: start: 20120506
  7. VALPROIC ACID [Suspect]
     Dosage: 600 mg, 1x/day

REACTIONS (3)
  - Overdose [Recovered/Resolved]
  - Suicide attempt [Recovered/Resolved]
  - Vomiting [Recovered/Resolved]
